FAERS Safety Report 13789509 (Version 1)
Quarter: 2017Q3

REPORT INFORMATION
  Report Type: Spontaneous
  Country: US (occurrence: US)
  Receive Date: 20170725
  Receipt Date: 20170725
  Transmission Date: 20171127
  Serious: No
  Sender: FDA-Public Use
  Company Number: US-ELI_LILLY_AND_COMPANY-US201707005464

PATIENT
  Sex: Male

DRUGS (2)
  1. TALTZ [Suspect]
     Active Substance: IXEKIZUMAB
     Indication: PSORIASIS
     Dosage: 80 MG, EVERY 2 WEEKS
     Route: 058
  2. OTEZLA [Concomitant]
     Active Substance: APREMILAST
     Indication: PSORIASIS
     Route: 065

REACTIONS (2)
  - Psoriasis [Unknown]
  - Drug ineffective [Unknown]
